FAERS Safety Report 7884601-4 (Version None)
Quarter: 2011Q4

REPORT INFORMATION
  Report Type: 
  Country: None (occurrence: None)
  Receive Date: 20111102
  Receipt Date: 20111028
  Transmission Date: 20120403
  Serious: Yes (Other)
  Sender: FDA-Public Use
  Company Number: US-PFIZER INC-2011241617

PATIENT
  Age: 83 Year
  Sex: Female

DRUGS (1)
  1. IBUPROFEN (ADVIL) [Suspect]
     Indication: BACK PAIN
     Dosage: UNK, 1 ADVIL A DAY NEVER MORE THAN 2
     Route: 065

REACTIONS (2)
  - THROMBOSIS [None]
  - NEURALGIA [None]
